FAERS Safety Report 14013938 (Version 1)
Quarter: 2017Q3

REPORT INFORMATION
  Report Type: Spontaneous
  Country: GB (occurrence: GB)
  Receive Date: 20170926
  Receipt Date: 20170926
  Transmission Date: 20171128
  Serious: Yes (Hospitalization, Other)
  Sender: FDA-Public Use
  Company Number: GB-MYLANLABS-2017M1058401

PATIENT
  Age: 32 Year
  Sex: Female
  Weight: 58.91 kg

DRUGS (6)
  1. FORCEVAL [Concomitant]
     Active Substance: FOLIC ACID\IRON\MINERALS\VITAMINS
     Indication: NUTRITIONAL SUPPLEMENTATION
     Route: 048
     Dates: start: 20170511
  2. CETIRIZINE [Concomitant]
     Active Substance: CETIRIZINE HYDROCHLORIDE
     Indication: SEASONAL ALLERGY
     Route: 048
     Dates: start: 20170410
  3. ZOPICLONE [Concomitant]
     Active Substance: ZOPICLONE
     Indication: INSOMNIA
     Route: 048
     Dates: start: 20170517
  4. VENLAFAXINE [Concomitant]
     Active Substance: VENLAFAXINE HYDROCHLORIDE
     Indication: POST-TRAUMATIC STRESS DISORDER
     Dates: start: 20170518
  5. LEVOTHYROXINE. [Concomitant]
     Active Substance: LEVOTHYROXINE
     Indication: HYPOTHYROIDISM
     Route: 048
     Dates: start: 20170519
  6. TOPIRAMATE. [Suspect]
     Active Substance: TOPIRAMATE
     Indication: POST-TRAUMATIC STRESS DISORDER
     Dosage: 25MG IN MORNING, 50MG AT NIGHT
     Route: 048
     Dates: start: 20170615, end: 20170626

REACTIONS (5)
  - Amnesia [Recovering/Resolving]
  - Disorientation [Recovering/Resolving]
  - Depression [Recovering/Resolving]
  - Suicidal ideation [Recovering/Resolving]
  - Disturbance in attention [Recovering/Resolving]

NARRATIVE: CASE EVENT DATE: 20170615
